FAERS Safety Report 16483591 (Version 3)
Quarter: 2019Q3

REPORT INFORMATION
  Report Type: Spontaneous
  Country: US (occurrence: US)
  Receive Date: 20190627
  Receipt Date: 20190909
  Transmission Date: 20191004
  Serious: No
  Sender: FDA-Public Use
  Company Number: US-PFIZER INC-2016144203

PATIENT
  Age: 63 Year
  Sex: Female
  Weight: 78.46 kg

DRUGS (2)
  1. LYRICA [Suspect]
     Active Substance: PREGABALIN
     Indication: FIBROMYALGIA
     Dosage: 300 MG, 2X/DAY
     Route: 048
     Dates: start: 2018
  2. LYRICA [Suspect]
     Active Substance: PREGABALIN
     Indication: NERVE INJURY
     Dosage: BETWEEN 150 MG TO 175 MG UNKNOWN FREQUENCY
     Dates: start: 2016

REACTIONS (7)
  - Hypersensitivity [Unknown]
  - Hypoaesthesia [Unknown]
  - Malaise [Unknown]
  - Ear pain [Unknown]
  - Nasopharyngitis [Unknown]
  - Hypoacusis [Unknown]
  - Off label use [Unknown]

NARRATIVE: CASE EVENT DATE: 2018
